FAERS Safety Report 6319265-4 (Version None)
Quarter: 2009Q3

REPORT INFORMATION
  Report Type: 
  Country: None (occurrence: None)
  Receive Date: 20090821
  Receipt Date: 20080820
  Transmission Date: 20100115
  Serious: No
  Sender: FDA-Public Use
  Company Number: US-ABBOTT-08P-163-0471639-00

PATIENT
  Sex: Male

DRUGS (4)
  1. NIASPAN [Suspect]
     Indication: BLOOD CHOLESTEROL INCREASED
     Route: 048
     Dates: start: 20030101
  2. METFORMIN [Concomitant]
     Indication: DIABETES MELLITUS
  3. GLIPIZIDE [Concomitant]
     Indication: DIABETES MELLITUS
  4. LISINOPRIL [Concomitant]
     Indication: BLOOD PRESSURE

REACTIONS (4)
  - FEELING HOT [None]
  - FLUSHING [None]
  - PRURITUS [None]
  - RASH [None]
